APPROVED DRUG PRODUCT: DIAZEPAM
Active Ingredient: DIAZEPAM
Strength: 5MG/5ML
Dosage Form/Route: SOLUTION;ORAL
Application: A070928 | Product #001 | TE Code: AA
Applicant: HIKMA PHARMACEUTICALS USA INC
Approved: Apr 3, 1987 | RLD: No | RS: Yes | Type: RX